FAERS Safety Report 10188298 (Version 2)
Quarter: 2014Q2

REPORT INFORMATION
  Report Type: Spontaneous
  Country: GB (occurrence: GB)
  Receive Date: 20140522
  Receipt Date: 20140613
  Transmission Date: 20141212
  Serious: Yes (Other)
  Sender: FDA-Public Use
  Company Number: PHHY2014GB060547

PATIENT
  Sex: Male

DRUGS (8)
  1. WARFARIN [Suspect]
     Indication: ATRIAL FIBRILLATION
     Dosage: 7 MG, UNK
  2. WARFARIN [Interacting]
     Dosage: 5.4 MG, UNK
  3. AMIODARONE [Suspect]
     Dosage: 200 MG, TID
  4. AMIODARONE [Suspect]
     Dosage: 1 DF, BID
  5. AMIODARONE [Suspect]
     Dosage: 200 MG, UNK
  6. AMIODARONE [Suspect]
     Dosage: 100 MG, UNK
     Dates: start: 20140416
  7. LOSARTAN [Concomitant]
     Dosage: 100 MG, UNK
  8. OMEPRAZOLE [Concomitant]
     Dosage: 20 MG, UNK

REACTIONS (5)
  - Gait disturbance [Unknown]
  - Vitreous floaters [Unknown]
  - Tremor [Unknown]
  - International normalised ratio increased [Unknown]
  - Drug interaction [Unknown]
